FAERS Safety Report 14683347 (Version 5)
Quarter: 2020Q4

REPORT INFORMATION
  Report Type: Spontaneous
  Country: US (occurrence: US)
  Receive Date: 20180327
  Receipt Date: 20201104
  Transmission Date: 20210113
  Serious: No
  Sender: FDA-Public Use
  Company Number: US-PFIZER INC-2016112777

PATIENT
  Age: 63 Year
  Sex: Female

DRUGS (1)
  1. LYRICA [Suspect]
     Active Substance: PREGABALIN
     Indication: SCIATIC NERVE INJURY
     Dosage: 50 MG

REACTIONS (5)
  - Intentional product use issue [Unknown]
  - Illness [Unknown]
  - Gait disturbance [Unknown]
  - Amnesia [Unknown]
  - Vomiting [Unknown]
